FAERS Safety Report 7432344-3 (Version None)
Quarter: 2011Q2

REPORT INFORMATION
  Report Type: 
  Country: None (occurrence: None)
  Receive Date: 20110414
  Receipt Date: 20110402
  Transmission Date: 20111010
  Serious: Yes (Hospitalization)
  Sender: FDA-Public Use
  Company Number: 2011AP000653

PATIENT
  Age: 63 Year
  Sex: Male

DRUGS (6)
  1. INTERFERON ALFA [Concomitant]
  2. AMLODIPINE BESYLATE [Suspect]
     Indication: HYPERTENSION
     Dosage: 5 MG
  3. SUNITINIB MALATE [Suspect]
     Indication: METASTASES TO LYMPH NODES
     Dosage: 50 MG;PO;QD ; 37.5 MG;PO;QD ; 25 MG;PO;QD
     Route: 048
  4. TOLBUTAMIDE [Concomitant]
  5. ATENOLOL [Concomitant]
  6. HALOPERIDOL [Concomitant]

REACTIONS (10)
  - HALLUCINATION, VISUAL [None]
  - TOXICITY TO VARIOUS AGENTS [None]
  - HYPONATRAEMIA [None]
  - DRUG INTERACTION [None]
  - BLOOD LACTATE DEHYDROGENASE INCREASED [None]
  - PALMAR-PLANTAR ERYTHRODYSAESTHESIA SYNDROME [None]
  - DEPRESSED MOOD [None]
  - PSYCHOTIC DISORDER [None]
  - DELUSION [None]
  - SLEEP DISORDER [None]
